FAERS Safety Report 8556291 (Version 2)
Quarter: 2025Q4

REPORT INFORMATION
  Report Type: Spontaneous
  Country: EU (occurrence: EU)
  Receive Date: 20120510
  Receipt Date: 20251105
  Transmission Date: 20260118
  Serious: Yes (Other)
  Sender: ROCHE
  Company Number: EU-ROCHE-802986

PATIENT
  Age: 64 Year
  Sex: Male

DRUGS (6)
  1. CELLCEPT [Suspect]
     Active Substance: MYCOPHENOLATE MOFETIL
     Indication: Dermatitis atopic
     Route: 065
  2. NEOTIGASON [Suspect]
     Active Substance: ACITRETIN
     Indication: Dermatitis atopic
     Route: 065
  3. AZATHIOPRINE [Suspect]
     Active Substance: AZATHIOPRINE
     Indication: Dermatitis atopic
     Dosage: DISCONTINUED
     Route: 065
  4. METHOTREXATE SODIUM [Suspect]
     Active Substance: METHOTREXATE SODIUM
     Indication: Dermatitis atopic
     Route: 065
  5. CYCLOSPORINE [Suspect]
     Active Substance: CYCLOSPORINE
     Indication: Dermatitis atopic
     Route: 065
  6. CYCLOSPORINE [Suspect]
     Active Substance: CYCLOSPORINE
     Dosage: INCREASED AFTER 2 MONTHES FROM INITIAL DOSE
     Route: 065

REACTIONS (5)
  - Lymphocytosis [Recovered/Resolved]
  - Thrombocytosis [Recovered/Resolved]
  - Cutaneous T-cell lymphoma [Not Recovered/Not Resolved]
  - Off label use [Unknown]
  - Gastrointestinal disorder [Recovered/Resolved]
